FAERS Safety Report 5916597-6 (Version None)
Quarter: 2008Q4

REPORT INFORMATION
  Report Type: 
  Country: None (occurrence: None)
  Receive Date: 20081013
  Receipt Date: 20081003
  Transmission Date: 20090506
  Serious: Yes (Death, Life-Threatening)
  Sender: FDA-Public Use
  Company Number: JP-MERCK-0809USA04245

PATIENT
  Age: 65 Year
  Sex: Male

DRUGS (15)
  1. PEPCID [Suspect]
     Route: 042
     Dates: start: 20070627, end: 20070629
  2. SERENACE [Suspect]
     Route: 042
     Dates: start: 20070627, end: 20070629
  3. RISPERDAL [Concomitant]
     Route: 048
     Dates: start: 20070612, end: 20070627
  4. SEROQUEL [Concomitant]
     Route: 048
     Dates: start: 20070612, end: 20070618
  5. RISPERDAL [Concomitant]
     Route: 048
     Dates: start: 20070612, end: 20070620
  6. BENZALIN [Concomitant]
     Route: 048
     Dates: start: 20070612, end: 20070627
  7. GLYCYRON [Concomitant]
     Route: 048
     Dates: start: 20070612, end: 20070623
  8. TASMOLIN TABLETS [Concomitant]
     Route: 048
     Dates: start: 20070612
  9. ZYPREXA [Concomitant]
     Route: 048
     Dates: start: 20070612, end: 20070620
  10. URSO 250 [Concomitant]
     Route: 048
     Dates: start: 20070622, end: 20070627
  11. ALLOID [Concomitant]
     Route: 048
     Dates: start: 20070627, end: 20070701
  12. TRIFLUID [Concomitant]
     Route: 042
     Dates: start: 20070627, end: 20070702
  13. FESIN [Concomitant]
     Route: 042
     Dates: start: 20070627, end: 20070630
  14. VITAMEDIN [Concomitant]
     Route: 042
  15. VITACIMIN [Concomitant]
     Route: 042

REACTIONS (2)
  - GRANULOCYTE COUNT DECREASED [None]
  - LIVER DISORDER [None]
